FAERS Safety Report 12843820 (Version 1)
Quarter: 2016Q4

REPORT INFORMATION
  Report Type: Spontaneous
  Country: US (occurrence: US)
  Receive Date: 20161013
  Receipt Date: 20161013
  Transmission Date: 20170207
  Serious: Yes (Hospitalization)
  Sender: FDA-Public Use
  Company Number: US-SA-2016SA184682

PATIENT
  Age: 55 Year
  Sex: Male

DRUGS (11)
  1. GENTAMICIN. [Concomitant]
     Active Substance: GENTAMICIN
     Indication: ENDOCARDITIS BACTERIAL
  2. PREDNISONE. [Suspect]
     Active Substance: PREDNISONE
     Indication: ENDOCARDITIS BACTERIAL
     Route: 048
  3. RIFAMPICIN [Suspect]
     Active Substance: RIFAMPIN
     Indication: ENDOCARDITIS BACTERIAL
     Route: 048
  4. DOXYCYCLINE. [Suspect]
     Active Substance: DOXYCYCLINE
     Indication: ENDOCARDITIS BACTERIAL
     Route: 065
  5. RIFAMPICIN [Suspect]
     Active Substance: RIFAMPIN
     Indication: ENDOCARDITIS BACTERIAL
     Route: 048
  6. CEFEPIME [Concomitant]
     Active Substance: CEFEPIME HYDROCHLORIDE
  7. DOXYCYCLINE. [Suspect]
     Active Substance: DOXYCYCLINE
     Indication: ENDOCARDITIS BACTERIAL
     Route: 065
  8. PREDNISONE. [Suspect]
     Active Substance: PREDNISONE
     Indication: ENDOCARDITIS BACTERIAL
     Route: 048
  9. VANCOMYCIN [Concomitant]
     Active Substance: VANCOMYCIN
     Route: 042
  10. PREDNISONE. [Suspect]
     Active Substance: PREDNISONE
     Indication: ENDOCARDITIS BACTERIAL
     Route: 048
  11. PREDNISONE. [Suspect]
     Active Substance: PREDNISONE
     Indication: ENDOCARDITIS BACTERIAL
     Route: 048

REACTIONS (11)
  - Cardiac failure congestive [Recovering/Resolving]
  - Aortic valve incompetence [Recovering/Resolving]
  - Incorrect dose administered [Unknown]
  - Mitral valve incompetence [Recovering/Resolving]
  - Condition aggravated [Recovering/Resolving]
  - Cat scratch disease [Recovering/Resolving]
  - Bartonella test positive [Recovering/Resolving]
  - Inappropriate schedule of drug administration [Unknown]
  - Ejection fraction decreased [Recovering/Resolving]
  - Endocarditis bacterial [Recovering/Resolving]
  - Dyspnoea [Recovering/Resolving]
